FAERS Safety Report 4994699-9 (Version None)
Quarter: 2006Q1

REPORT INFORMATION
  Report Type: 
  Country: None (occurrence: None)
  Receive Date: 20060313
  Receipt Date: 20050519
  Transmission Date: 20060701
  Serious: Yes (Other)
  Sender: FDA-Public Use
  Company Number: PHEH2005US03465

PATIENT
  Age: 52 Year
  Sex: Female

DRUGS (7)
  1. TRILEPTAL [Suspect]
     Indication: COMPLEX PARTIAL SEIZURES
     Dosage: 1050 MG,BID,ORAL
     Route: 048
     Dates: start: 20050221, end: 20050425
  2. ACTONEL [Concomitant]
  3. MULTIVITAMIN [Concomitant]
  4. ERGOCALCIFEROL [Concomitant]
  5. FOLIC ACID [Concomitant]
  6. NICOTINAMIDE [Concomitant]
  7. PANTHENOL [Concomitant]

REACTIONS (6)
  - BURNING SENSATION [None]
  - DIZZINESS [None]
  - HYPONATRAEMIA [None]
  - NAUSEA [None]
  - PARAESTHESIA [None]
  - SKIN TIGHTNESS [None]
